FAERS Safety Report 19450185 (Version 1)
Quarter: 2021Q2

REPORT INFORMATION
  Report Type: Spontaneous
  Country: DE (occurrence: DE)
  Receive Date: 20210622
  Receipt Date: 20210622
  Transmission Date: 20210717
  Serious: Yes (Other)
  Sender: FDA-Public Use
  Company Number: DE-009507513-2106DEU005270

PATIENT
  Age: 67 Year
  Sex: Male

DRUGS (1)
  1. KEYTRUDA [Suspect]
     Active Substance: PEMBROLIZUMAB
     Indication: NON-SMALL CELL LUNG CANCER METASTATIC
     Dosage: UNK
     Dates: start: 202012

REACTIONS (7)
  - Therapy partial responder [Unknown]
  - Fatigue [Unknown]
  - Therapy partial responder [Unknown]
  - Cachexia [Unknown]
  - Malignant neoplasm progression [Unknown]
  - Sjogren^s syndrome [Unknown]
  - Blood thyroid stimulating hormone increased [Unknown]

NARRATIVE: CASE EVENT DATE: 202101
